FAERS Safety Report 7048948-6 (Version None)
Quarter: 2010Q4

REPORT INFORMATION
  Report Type: 
  Country: None (occurrence: None)
  Receive Date: 20101018
  Receipt Date: 20101007
  Transmission Date: 20110411
  Serious: Yes (Death)
  Sender: FDA-Public Use
  Company Number: US-SANOFI-AVENTIS-2010SA056909

PATIENT
  Age: 57 Year
  Sex: Female
  Weight: 73 kg

DRUGS (6)
  1. ELOXATIN [Suspect]
     Route: 041
     Dates: start: 20100726, end: 20100726
  2. ELOXATIN [Suspect]
     Dosage: CYCLE 2, DAY 15
     Route: 041
     Dates: start: 20100913, end: 20100913
  3. BEVACIZUMAB [Suspect]
     Dosage: CYCLE 2, DAY 15
     Route: 042
     Dates: start: 20100913, end: 20100913
  4. BEVACIZUMAB [Suspect]
     Dosage: CYCLE 2, DAY 15
     Route: 042
     Dates: start: 20100726, end: 20100726
  5. CAMPTOSAR [Suspect]
     Route: 042
     Dates: start: 20100726, end: 20100726
  6. CAMPTOSAR [Suspect]
     Dosage: CYCLE 2, DAY 15.
     Route: 042
     Dates: start: 20100913, end: 20100913

REACTIONS (1)
  - DEATH [None]
